FAERS Safety Report 15837565 (Version 1)
Quarter: 2019Q1

REPORT INFORMATION
  Report Type: Spontaneous
  Country: US (occurrence: US)
  Receive Date: 20190117
  Receipt Date: 20190117
  Transmission Date: 20190417
  Serious: Yes (Other)
  Sender: FDA-Public Use
  Company Number: US-MYLANLABS-2019M1002863

PATIENT
  Age: 37 Year
  Sex: Female

DRUGS (3)
  1. KRATOM [Suspect]
     Active Substance: HERBALS\MITRAGYNINE
     Indication: PAIN
     Dosage: 3 TO 4 GRAM
     Route: 065
  2. CELEXA [Concomitant]
     Active Substance: CITALOPRAM HYDROBROMIDE
     Route: 065
  3. AMFETAMINE/DEXAMFETAMINE [Suspect]
     Active Substance: AMPHETAMINE SULFATE\DEXTROAMPHETAMINE
     Indication: ATTENTION DEFICIT/HYPERACTIVITY DISORDER
     Dosage: THREE TIMES A DAY
     Route: 065

REACTIONS (16)
  - Speech disorder [Unknown]
  - Muscle rigidity [Unknown]
  - Tremor [Unknown]
  - Restlessness [Unknown]
  - Dysarthria [Unknown]
  - Mydriasis [Unknown]
  - Pupillary reflex impaired [Unknown]
  - Blood pressure increased [Unknown]
  - Drug abuse [Unknown]
  - Erythema [Unknown]
  - Logorrhoea [Unknown]
  - Heart rate increased [Unknown]
  - Impaired driving ability [Unknown]
  - Balance disorder [Unknown]
  - Muscle twitching [Unknown]
  - Hyperreflexia [Unknown]
